FAERS Safety Report 15666943 (Version 1)
Quarter: 2018Q4

REPORT INFORMATION
  Report Type: Spontaneous
  Country: US (occurrence: US)
  Receive Date: 20181128
  Receipt Date: 20181128
  Transmission Date: 20190205
  Serious: No
  Sender: FDA-Public Use
  Company Number: US-ROCHE-2164264

PATIENT
  Sex: Female

DRUGS (1)
  1. OCREVUS [Suspect]
     Active Substance: OCRELIZUMAB
     Indication: RELAPSING MULTIPLE SCLEROSIS
     Dosage: EVERY 6 MONTHS;
     Route: 042
     Dates: start: 201401

REACTIONS (2)
  - Blood immunoglobulin G decreased [Not Recovered/Not Resolved]
  - Fatigue [Not Recovered/Not Resolved]
